FAERS Safety Report 21522013 (Version 1)
Quarter: 2022Q4

REPORT INFORMATION
  Report Type: Spontaneous
  Country: US (occurrence: None)
  Receive Date: 20221027
  Receipt Date: 20221027
  Transmission Date: 20230112
  Serious: No
  Sender: FDA-Public Use
  Company Number: None

PATIENT
  Age: 78 Year
  Sex: Male
  Weight: 72.57 kg

DRUGS (1)
  1. CILGAVIMAB\TIXAGEVIMAB [Suspect]
     Active Substance: CILGAVIMAB\TIXAGEVIMAB
     Indication: Immunisation
     Dosage: FREQUENCY : ONCE;?
     Route: 030
     Dates: start: 20220908, end: 20220908

REACTIONS (4)
  - Chest discomfort [None]
  - Sensory disturbance [None]
  - Musculoskeletal chest pain [None]
  - Abdominal tenderness [None]

NARRATIVE: CASE EVENT DATE: 20220908
